FAERS Safety Report 12847726 (Version 1)
Quarter: 2016Q4

REPORT INFORMATION
  Report Type: Spontaneous
  Country: US (occurrence: US)
  Receive Date: 20161013
  Receipt Date: 20161013
  Transmission Date: 20170207
  Serious: Yes (Other)
  Sender: FDA-Public Use
  Company Number: None

PATIENT
  Age: 59 Year
  Sex: Male
  Weight: 96.75 kg

DRUGS (4)
  1. VITAMIN D [Concomitant]
     Active Substance: CHOLECALCIFEROL
  2. VITAMIN B [Concomitant]
     Active Substance: VITAMIN B
  3. VITAMIN C [Concomitant]
     Active Substance: ASCORBIC ACID
  4. RESTASIS [Suspect]
     Active Substance: CYCLOSPORINE
     Indication: DRY EYE
     Route: 047

REACTIONS (4)
  - Pain [None]
  - Swelling [None]
  - Eyelid irritation [None]
  - Blepharospasm [None]

NARRATIVE: CASE EVENT DATE: 20161001
